FAERS Safety Report 5813504-1 (Version None)
Quarter: 2008Q3

REPORT INFORMATION
  Report Type: 
  Country: None (occurrence: None)
  Receive Date: 20080717
  Receipt Date: 20080708
  Transmission Date: 20090109
  Serious: Yes (Hospitalization, Other)
  Sender: FDA-Public Use
  Company Number: FR-ELI_LILLY_AND_COMPANY-FR200804005720

PATIENT
  Age: 71 Year
  Sex: Female
  Weight: 45 kg

DRUGS (2)
  1. FORTEO [Suspect]
     Indication: OSTEOPOROSIS
     Dosage: 20 UG, DAILY (1/D)
     Route: 058
     Dates: start: 20070312, end: 20080205
  2. CORTANCYL [Concomitant]
     Dosage: 3 MG, DAILY (1/D)
     Route: 065

REACTIONS (7)
  - ANGINA UNSTABLE [None]
  - ASTHENIA [None]
  - CORONARY ARTERY INSUFFICIENCY [None]
  - ORAL FUNGAL INFECTION [None]
  - SEPSIS [None]
  - STAPHYLOCOCCAL INFECTION [None]
  - TACHYCARDIA [None]
